FAERS Safety Report 19078805 (Version 2)
Quarter: 2021Q2

REPORT INFORMATION
  Report Type: Spontaneous
  Country: DE (occurrence: DE)
  Receive Date: 20210331
  Receipt Date: 20210429
  Transmission Date: 20210717
  Serious: Yes (Other)
  Sender: FDA-Public Use
  Company Number: DE-ALLERGAN-2113099US

PATIENT

DRUGS (1)
  1. OZURDEX [Suspect]
     Active Substance: DEXAMETHASONE
     Indication: PRODUCT USED FOR UNKNOWN INDICATION
     Dosage: 0.7 MG, SINGLE
     Route: 031

REACTIONS (6)
  - Photophobia [Unknown]
  - Visual acuity reduced [Unknown]
  - Granulicatella infection [Unknown]
  - Venous occlusion [Unknown]
  - Headache [Unknown]
  - Endophthalmitis [Recovered/Resolved with Sequelae]
